FAERS Safety Report 7007901-9 (Version None)
Quarter: 2010Q3

REPORT INFORMATION
  Report Type: 
  Country: None (occurrence: None)
  Receive Date: 20100920
  Receipt Date: 20100909
  Transmission Date: 20110219
  Serious: Yes (Hospitalization)
  Sender: FDA-Public Use
  Company Number: LTI2010A00192

PATIENT
  Age: 39 Year
  Sex: Male

DRUGS (5)
  1. ACTOPLUS MET [Suspect]
     Indication: TYPE 2 DIABETES MELLITUS
     Dosage: 3 DF (1 DF, 3 IN 1 D) ORAL
     Route: 048
     Dates: start: 20081101, end: 20090525
  2. PEGASYS [Suspect]
     Indication: HEPATITIS C
     Dosage: 180 MCG (1 IN 1 WK) SUBCUTANEOUS
     Route: 058
     Dates: start: 20081001, end: 20090520
  3. COPEGUS [Suspect]
     Indication: HEPATITIS C
     Dosage: ORAL
     Route: 048
     Dates: start: 20081001, end: 20090514
  4. METFORMIN HCL [Concomitant]
  5. MIANSERIN (MIANSERIN) [Concomitant]

REACTIONS (7)
  - DYSPNOEA [None]
  - INFLUENZA [None]
  - OEDEMA PERIPHERAL [None]
  - PERICARDIAL EFFUSION [None]
  - PERICARDITIS CONSTRICTIVE [None]
  - RIGHT VENTRICULAR FAILURE [None]
  - TACHYCARDIA [None]
